FAERS Safety Report 17251461 (Version 3)
Quarter: 2020Q1

REPORT INFORMATION
  Report Type: Spontaneous
  Country: US (occurrence: US)
  Receive Date: 20200109
  Receipt Date: 20200303
  Transmission Date: 20200409
  Serious: Yes (Other)
  Sender: FDA-Public Use
  Company Number: US-PFIZER INC-2020005671

PATIENT
  Age: 70 Year
  Sex: Female

DRUGS (7)
  1. CELEBREX [Suspect]
     Active Substance: CELECOXIB
     Dosage: 200 MG, 1X/DAY
     Route: 048
  2. VITAMIN D3 [Concomitant]
     Active Substance: CHOLECALCIFEROL
     Dosage: UNK
  3. BABY ASPIRIN [Concomitant]
     Active Substance: ASPIRIN
     Indication: ARTHRITIS
     Dosage: UNK
  4. TYLENOL 8HR [Concomitant]
     Active Substance: ACETAMINOPHEN
     Indication: ARTHRITIS
     Dosage: UNK, DURING THE DAY
  5. CALCIUM [Concomitant]
     Active Substance: CALCIUM
     Indication: ARTHRITIS
     Dosage: UNK
  6. CELEBREX [Suspect]
     Active Substance: CELECOXIB
     Indication: ARTHRITIS
     Dosage: 200 MG, 1X/DAY
     Route: 048
  7. PROLIA [Concomitant]
     Active Substance: DENOSUMAB
     Dosage: UNK

REACTIONS (10)
  - Cataract [Unknown]
  - Dizziness [Unknown]
  - Somnolence [Unknown]
  - Blood pressure abnormal [Unknown]
  - Neck pain [Unknown]
  - Fatigue [Unknown]
  - Pollakiuria [Unknown]
  - Bladder spasm [Unknown]
  - Pain [Unknown]
  - Body height decreased [Unknown]
